FAERS Safety Report 10218440 (Version 2)
Quarter: 2014Q2

REPORT INFORMATION
  Report Type: Spontaneous
  Country: JP (occurrence: JP)
  Receive Date: 20140605
  Receipt Date: 20140605
  Transmission Date: 20141212
  Serious: Yes (Other)
  Sender: FDA-Public Use
  Company Number: PHHY2014JP053929

PATIENT
  Age: 61 Year
  Sex: Male

DRUGS (2)
  1. SANDOSTATIN [Suspect]
     Indication: INTESTINAL OBSTRUCTION
     Dosage: UNK UKN, UNK
  2. SANDOSTATIN [Suspect]
     Indication: OFF LABEL USE

REACTIONS (2)
  - Renal disorder [Recovering/Resolving]
  - Blood creatinine increased [Recovered/Resolved]
